FAERS Safety Report 20064510 (Version 1)
Quarter: 2021Q4

REPORT INFORMATION
  Report Type: Spontaneous
  Country: US (occurrence: US)
  Receive Date: 20211112
  Receipt Date: 20211112
  Transmission Date: 20220303
  Serious: No
  Sender: FDA-Public Use
  Company Number: US-THERAPEUTICSMD-2021TMD02429

PATIENT
  Age: 65 Year
  Sex: Female

DRUGS (1)
  1. BIJUVA [Suspect]
     Active Substance: ESTRADIOL\PROGESTERONE
     Indication: Insomnia
     Dosage: UNK
     Dates: start: 202108

REACTIONS (4)
  - Vulvovaginal dryness [Unknown]
  - Vulvovaginal pruritus [Unknown]
  - Off label use [Unknown]
  - Pelvic pain [Unknown]

NARRATIVE: CASE EVENT DATE: 20210101
